FAERS Safety Report 18980831 (Version 1)
Quarter: 2021Q1

REPORT INFORMATION
  Report Type: Report from Study
  Country: IT (occurrence: IT)
  Receive Date: 20210308
  Receipt Date: 20210308
  Transmission Date: 20210420
  Serious: Yes (Other)
  Sender: FDA-Public Use
  Company Number: IT-EMD SERONO-9218688

PATIENT
  Age: 30 Year
  Sex: Female

DRUGS (2)
  1. MAVENCLAD [Suspect]
     Active Substance: CLADRIBINE
     Indication: MULTIPLE SCLEROSIS
     Dosage: YEAR ONE THERAPY
  2. MAVENCLAD [Interacting]
     Active Substance: CLADRIBINE
     Dosage: YEAR TWO THERAPY

REACTIONS (3)
  - Pregnancy on oral contraceptive [Unknown]
  - Drug interaction [Unknown]
  - Maternal exposure timing unspecified [Unknown]
